FAERS Safety Report 5800173-X (Version None)
Quarter: 2008Q3

REPORT INFORMATION
  Report Type: 
  Country: None (occurrence: None)
  Receive Date: 20080702
  Receipt Date: 20080702
  Transmission Date: 20090109
  Serious: Yes (Other)
  Sender: FDA-Public Use
  Company Number: None

PATIENT
  Age: 70 Year
  Sex: Male

DRUGS (1)
  1. DIGITEK 0.25MG BERTEK [Suspect]
     Dosage: TAKE 1 TABLET BY MOUTH DAILY

REACTIONS (5)
  - EXTRASYSTOLES [None]
  - EYE IRRITATION [None]
  - HALO VISION [None]
  - VISION BLURRED [None]
  - VISUAL IMPAIRMENT [None]
